FAERS Safety Report 25899478 (Version 1)
Quarter: 2025Q4

REPORT INFORMATION
  Report Type: Report from Study
  Country: EU (occurrence: EU)
  Receive Date: 20251009
  Receipt Date: 20251009
  Transmission Date: 20260117
  Serious: Yes (Other)
  Sender: TAKEDA
  Company Number: EU-TAKEDA-2025TUS088161

PATIENT
  Age: 71 Year
  Sex: Female

DRUGS (10)
  1. HUMAN IMMUNOGLOBULIN G\HYALURONIDASE RECOMBINANT HUMAN [Suspect]
     Active Substance: HUMAN IMMUNOGLOBULIN G\HYALURONIDASE (HUMAN RECOMBINANT)
     Indication: Immunodeficiency common variable
     Dosage: 300 MILLILITER, MONTHLY
     Dates: start: 20250411
  2. BECLOMETHASONE DIPROPIONATE\FORMOTEROL FUMARATE\GLYCOPYRROLATE [Concomitant]
     Active Substance: BECLOMETHASONE DIPROPIONATE\FORMOTEROL FUMARATE\GLYCOPYRROLATE
     Indication: Asthma
     Dosage: UNK UNK, BID
  3. ALBUTEROL SULFATE\IPRATROPIUM BROMIDE [Concomitant]
     Active Substance: ALBUTEROL SULFATE\IPRATROPIUM BROMIDE
     Indication: Pneumonia
     Dosage: 0.5 MILLIGRAM, TID
  4. Becloneb [Concomitant]
     Indication: Pneumonia
     Dosage: 800 MILLIGRAM, QD
  5. Calcio [Concomitant]
     Dosage: UNK UNK, BID
  6. Co diovane [Concomitant]
     Indication: Blood pressure abnormal
     Dosage: 345 MILLIGRAM, QD
  7. LANSOPRAZOLE [Concomitant]
     Active Substance: LANSOPRAZOLE
     Indication: Arrhythmia
     Dosage: 25 MILLIGRAM, QD
  8. LOSEC [Concomitant]
     Active Substance: OMEPRAZOLE
     Indication: Abdominal discomfort
     Dosage: 20 MILLIGRAM, QD
  9. LASIX [Concomitant]
     Active Substance: FUROSEMIDE
     Indication: Fluid retention
     Dosage: 40 MILLIGRAM
  10. Singodem [Concomitant]
     Indication: Asthma
     Dosage: 10 MILLIGRAM, QD

REACTIONS (13)
  - Pneumonia [Unknown]
  - Diverticulitis [Recovered/Resolved]
  - Influenza [Unknown]
  - Bone pain [Unknown]
  - Productive cough [Recovered/Resolved]
  - Cough [Unknown]
  - Chills [Unknown]
  - Pyrexia [Recovered/Resolved]
  - Viral infection [Unknown]
  - Pain in extremity [Unknown]
  - Infection [Not Recovered/Not Resolved]
  - Illness [Not Recovered/Not Resolved]
  - General physical health deterioration [Not Recovered/Not Resolved]

NARRATIVE: CASE EVENT DATE: 20250411
